FAERS Safety Report 6247715-0 (Version None)
Quarter: 2009Q2

REPORT INFORMATION
  Report Type: 
  Country: None (occurrence: None)
  Receive Date: 20090626
  Receipt Date: 20090616
  Transmission Date: 20091009
  Serious: Yes (Other)
  Sender: FDA-Public Use
  Company Number: PHHY2009JP23079

PATIENT
  Age: 71 Year
  Sex: Female

DRUGS (2)
  1. GLEEVEC [Suspect]
     Indication: CHRONIC MYELOID LEUKAEMIA
     Dosage: 400 MG/DAY
     Route: 048
     Dates: start: 20090201, end: 20090321
  2. GLEEVEC [Suspect]
     Dosage: 400 MG/DAY
     Route: 048
     Dates: start: 20090416, end: 20090510

REACTIONS (6)
  - ABNORMAL BEHAVIOUR [None]
  - BIPOLAR I DISORDER [None]
  - DELUSION [None]
  - INSOMNIA [None]
  - PLATELET COUNT DECREASED [None]
  - PRURITUS [None]
